FAERS Safety Report 8771635 (Version 2)
Quarter: 2012Q4

REPORT INFORMATION
  Report Type: 
  Country: JP (occurrence: JP)
  Receive Date: 20120906
  Receipt Date: 20120926
  Transmission Date: 20130627
  Serious: Yes (Other)
  Sender: FDA-Public Use
  Company Number: JP-NAPPMUNDI-GBR-2012-0011282

PATIENT
  Age: 50 Year
  Sex: Male

DRUGS (4)
  1. BUPRENORPHINE TRANSDERMAL SYSTEM [Suspect]
     Indication: ANALGESIC THERAPY
     Dosage: 5 mcg, q1h
     Route: 062
     Dates: start: 20120717
  2. BUPRENORPHINE TRANSDERMAL SYSTEM [Suspect]
     Dosage: 10 mcg, q1h
     Route: 062
     Dates: start: 20120711, end: 20120713
  3. BUPRENORPHINE TRANSDERMAL SYSTEM [Suspect]
     Dosage: 5 mcg, q1h
     Route: 062
     Dates: start: 20120627, end: 20120710
  4. NAUZELIN [Concomitant]
     Route: 065

REACTIONS (4)
  - Extrapyramidal disorder [Recovered/Resolved]
  - Cold sweat [Recovering/Resolving]
  - Dizziness postural [Recovering/Resolving]
  - Presyncope [Recovering/Resolving]
